FAERS Safety Report 6097512-4 (Version None)
Quarter: 2009Q1

REPORT INFORMATION
  Report Type: 
  Country: None (occurrence: None)
  Receive Date: 20090227
  Receipt Date: 20080909
  Transmission Date: 20090719
  Serious: No
  Sender: FDA-Public Use
  Company Number: A0746594A

PATIENT
  Sex: Female

DRUGS (2)
  1. IMITREX [Suspect]
     Indication: MIGRAINE
     Dosage: 6MG AS REQUIRED
     Route: 058
  2. NEXIUM [Concomitant]

REACTIONS (4)
  - CONTUSION [None]
  - INJECTION SITE HAEMORRHAGE [None]
  - PARAESTHESIA [None]
  - URTICARIA [None]
